FAERS Safety Report 5400671-7 (Version None)
Quarter: 2007Q3

REPORT INFORMATION
  Report Type: 
  Country: None (occurrence: None)
  Receive Date: 20070730
  Receipt Date: 20070718
  Transmission Date: 20080115
  Serious: Yes (Hospitalization)
  Sender: FDA-Public Use
  Company Number: BG-ELI_LILLY_AND_COMPANY-BG200707004582

PATIENT
  Age: 52 Year
  Sex: Female

DRUGS (2)
  1. GEMCITABINE HCL [Suspect]
     Indication: PANCREATIC CARCINOMA
     Dosage: 1400 MG, UNK
     Route: 042
     Dates: start: 20070710
  2. METOCLOPRAMID [Concomitant]
     Dosage: 10 MG, UNK
     Route: 042

REACTIONS (1)
  - URTICARIA PAPULAR [None]
